FAERS Safety Report 9278316 (Version 1)
Quarter: 2013Q2

REPORT INFORMATION
  Report Type: Spontaneous
  Country: US (occurrence: None)
  Receive Date: 20130506
  Receipt Date: 20130506
  Transmission Date: 20140414
  Serious: Yes (Hospitalization)
  Sender: FDA-Public Use
  Company Number: None

PATIENT
  Age: 64 Year
  Sex: Male
  Weight: 83.92 kg

DRUGS (5)
  1. VICTOZA [Suspect]
     Indication: DIABETES MELLITUS INADEQUATE CONTROL
     Dosage: 1.8 MG DAILY SQ
     Route: 058
  2. LANTUS [Concomitant]
  3. METOCLOPRAMIDE [Concomitant]
  4. PANTOPRAZOLE [Concomitant]
  5. ATORVASTATIN [Concomitant]

REACTIONS (6)
  - Abdominal pain [None]
  - Nausea [None]
  - Diarrhoea [None]
  - Constipation [None]
  - Vomiting [None]
  - Impaired gastric emptying [None]
